FAERS Safety Report 22160733 (Version 3)
Quarter: 2023Q2

REPORT INFORMATION
  Report Type: Report from Study
  Country: CO (occurrence: CO)
  Receive Date: 20230331
  Receipt Date: 20230419
  Transmission Date: 20230722
  Serious: Yes (Hospitalization, Other)
  Sender: FDA-Public Use
  Company Number: CO-ABBVIE-4710319

PATIENT
  Age: 35 Year
  Sex: Male
  Weight: 83 kg

DRUGS (1)
  1. SKYRIZI [Suspect]
     Active Substance: RISANKIZUMAB-RZAA
     Indication: Psoriasis
     Dosage: FORM STRENGTH: 75 MG
     Route: 058
     Dates: start: 20221205, end: 20230105

REACTIONS (25)
  - Thrombotic microangiopathy [Unknown]
  - Petechiae [Recovering/Resolving]
  - Red blood cell poikilocytes present [Recovering/Resolving]
  - Cutaneous symptom [Unknown]
  - Red blood cell schistocytes present [Unknown]
  - Anisocytosis [Recovering/Resolving]
  - Red blood cell microcytes present [Recovering/Resolving]
  - Epistaxis [Recovering/Resolving]
  - Lymphocyte morphology abnormal [Recovering/Resolving]
  - Red blood cell analysis abnormal [Recovering/Resolving]
  - Red blood cell macrocytes present [Recovering/Resolving]
  - Superficial inflammatory dermatosis [Recovering/Resolving]
  - Prothrombin time prolonged [Recovering/Resolving]
  - Haematocrit abnormal [Recovering/Resolving]
  - Activated partial thromboplastin time prolonged [Recovering/Resolving]
  - Leukocytosis [Recovering/Resolving]
  - Gingival bleeding [Recovering/Resolving]
  - Rash [Unknown]
  - International normalised ratio increased [Recovering/Resolving]
  - C-reactive protein increased [Recovering/Resolving]
  - Haemoglobin decreased [Recovering/Resolving]
  - Thrombocytopenia [Recovering/Resolving]
  - Haematoma [Recovering/Resolving]
  - Red blood cell hypochromic morphology present [Recovering/Resolving]
  - Contusion [Unknown]

NARRATIVE: CASE EVENT DATE: 20230210
